FAERS Safety Report 5204363-9 (Version None)
Quarter: 2007Q1

REPORT INFORMATION
  Report Type: 
  Country: None (occurrence: None)
  Receive Date: 20070110
  Receipt Date: 20060302
  Transmission Date: 20070707
  Serious: No
  Sender: FDA-Public Use
  Company Number: US-BRISTOL-MYERS SQUIBB COMPANY-13301221

PATIENT
  Age: 22 Year
  Sex: Male
  Weight: 65 kg

DRUGS (7)
  1. ABILIFY [Suspect]
     Indication: BIPOLAR DISORDER
     Dosage: DURATION: 1-2 MONTHS
     Dates: start: 20060101, end: 20060302
  2. ABILIFY [Suspect]
     Indication: DEPRESSION
     Dosage: DURATION: 1-2 MONTHS
     Dates: start: 20060101, end: 20060302
  3. NORCO [Concomitant]
  4. NEXIUM [Concomitant]
  5. RECOMBINATE [Concomitant]
  6. REMERON [Concomitant]
  7. TENEX [Concomitant]

REACTIONS (3)
  - CANDIDIASIS [None]
  - HYPERGLYCAEMIA [None]
  - POLYDIPSIA [None]
